FAERS Safety Report 11005308 (Version 1)
Quarter: 2015Q2

REPORT INFORMATION
  Report Type: Spontaneous
  Country: FR (occurrence: FR)
  Receive Date: 20150409
  Receipt Date: 20150409
  Transmission Date: 20150821
  Serious: Yes (Other)
  Sender: FDA-Public Use
  Company Number: FR-PFIZER INC-2015034296

PATIENT
  Age: 38 Year
  Sex: Female

DRUGS (20)
  1. LYRICA [Suspect]
     Active Substance: PREGABALIN
     Dosage: 150 MG IN MORNING AND AT NOON AND 100 MG IN EVENING
     Dates: start: 20141227, end: 20141229
  2. LYRICA [Suspect]
     Active Substance: PREGABALIN
     Dosage: 200 MG IN IN MORNING AND 150 MG AT NOON AND IN EVENING
     Dates: start: 20150102, end: 20150104
  3. LYRICA [Suspect]
     Active Substance: PREGABALIN
     Dosage: 200 UNK, UNK
     Dates: start: 20150108
  4. SERTRALINE HYDROCHLORIDE. [Concomitant]
     Active Substance: SERTRALINE HYDROCHLORIDE
     Dosage: 50 MG, 1X/DAY
     Route: 048
  5. TITANOREINE [Concomitant]
     Active Substance: CARRAGEENAN\TITANIUM\ZINC
     Dosage: 2 TO 3 TIMES DAILY
  6. DAFLON 500 [Concomitant]
     Dosage: 2 DF, 3X/DAY
  7. LYRICA [Suspect]
     Active Substance: PREGABALIN
     Dosage: 100 MG, 3X/DAY
     Dates: start: 20141207, end: 20141211
  8. LYRICA [Suspect]
     Active Substance: PREGABALIN
     Dosage: 100 MG, 3X/DAY
     Dates: start: 20141213, end: 20141217
  9. LYRICA [Suspect]
     Active Substance: PREGABALIN
     Dosage: 100 MG IN MORNING, 50 MG AT NOON AND 100 MG IN EVENING
     Dates: start: 20141218, end: 20141220
  10. LYRICA [Suspect]
     Active Substance: PREGABALIN
     Dosage: 100 MG, 3X/DAY
     Dates: start: 20141221, end: 20141223
  11. LYRICA [Suspect]
     Active Substance: PREGABALIN
     Dosage: 150 MG, 3X/DAY
     Dates: start: 20141231, end: 20150101
  12. LASILIX [Concomitant]
     Active Substance: FUROSEMIDE
     Dosage: 10 MG, DAILY
  13. OMEPRAZOLE. [Concomitant]
     Active Substance: OMEPRAZOLE
     Dosage: 20 MG, DAILY
     Route: 048
  14. LYRICA [Suspect]
     Active Substance: PREGABALIN
     Dosage: 200 MG IN MORNING AND AT NOON AND 150 MG IN EVENING
     Dates: start: 20150105, end: 20150107
  15. TRANSULOSE [Concomitant]
     Dosage: 2 DF, 1X/DAY
  16. PARACETAMOL [Concomitant]
     Active Substance: ACETAMINOPHEN
     Dosage: 1000 MG, 4X/DAY
     Route: 054
  17. LYRICA [Suspect]
     Active Substance: PREGABALIN
     Indication: FEMORAL NERVE INJURY
     Dosage: 50 UNK, UNK
     Dates: start: 20141202
  18. LYRICA [Suspect]
     Active Substance: PREGABALIN
     Dosage: 150 MG IN MORNING, 100 MG AT NOON AND 100 MG IN EVENING
     Dates: start: 20141224, end: 20141226
  19. ZOLOFT [Concomitant]
     Active Substance: SERTRALINE HYDROCHLORIDE
     Dosage: 50 MG, DAILY
     Dates: start: 201105
  20. LEXOMIL [Concomitant]
     Active Substance: BROMAZEPAM
     Dosage: 0.25 DF, 3X/DAY
     Dates: start: 201411, end: 201502

REACTIONS (2)
  - Prescribed overdose [Recovered/Resolved]
  - Suicide attempt [Unknown]

NARRATIVE: CASE EVENT DATE: 20150111
